FAERS Safety Report 10879067 (Version 1)
Quarter: 2015Q1

REPORT INFORMATION
  Report Type: Spontaneous
  Country: US (occurrence: None)
  Receive Date: 20150224
  Receipt Date: 20150224
  Transmission Date: 20150721
  Serious: Yes (Hospitalization)
  Sender: FDA-Public Use
  Company Number: None

PATIENT
  Age: 23 Year
  Sex: Female
  Weight: 72.58 kg

DRUGS (1)
  1. IMPLANON [Suspect]
     Active Substance: ETONOGESTREL

REACTIONS (7)
  - Pruritus [None]
  - Rash [None]
  - Migraine [None]
  - Fluid retention [None]
  - Gallbladder disorder [None]
  - Cholecystectomy [None]
  - Weight increased [None]

NARRATIVE: CASE EVENT DATE: 20140219
